FAERS Safety Report 25162967 (Version 2)
Quarter: 2025Q2

REPORT INFORMATION
  Report Type: Report from Study
  Country: CA (occurrence: CA)
  Receive Date: 20250404
  Receipt Date: 20250606
  Transmission Date: 20250717
  Serious: Yes (Other)
  Sender: TAKEDA
  Company Number: CA-TAKEDA-2019TUS019056

PATIENT
  Sex: Female

DRUGS (7)
  1. VEDOLIZUMAB [Suspect]
     Active Substance: VEDOLIZUMAB
     Indication: Colitis ulcerative
  2. VEDOLIZUMAB [Suspect]
     Active Substance: VEDOLIZUMAB
  3. VEDOLIZUMAB [Suspect]
     Active Substance: VEDOLIZUMAB
  4. VEDOLIZUMAB [Suspect]
     Active Substance: VEDOLIZUMAB
  5. ASACOL [Concomitant]
     Active Substance: MESALAMINE
     Dosage: 4800 MILLIGRAM, QD
     Dates: start: 201201
  6. Salofalk [Concomitant]
  7. PREDNISONE [Concomitant]
     Active Substance: PREDNISONE

REACTIONS (7)
  - Sinusitis [Recovering/Resolving]
  - Arthritis [Recovering/Resolving]
  - Arthralgia [Recovering/Resolving]
  - Decreased immune responsiveness [Unknown]
  - Asthenia [Not Recovered/Not Resolved]
  - Nasopharyngitis [Not Recovered/Not Resolved]
  - Dizziness [Recovering/Resolving]
